FAERS Safety Report 12738349 (Version 1)
Quarter: 2016Q3

REPORT INFORMATION
  Report Type: Spontaneous
  Country: US (occurrence: US)
  Receive Date: 20160913
  Receipt Date: 20160913
  Transmission Date: 20161109
  Serious: No
  Sender: FDA-Public Use
  Company Number: US-PFIZER INC-2016424838

PATIENT
  Age: 50 Year
  Sex: Female
  Weight: 43.9 kg

DRUGS (1)
  1. ADVIL PM [Suspect]
     Active Substance: DIPHENHYDRAMINE CITRATE\IBUPROFEN
     Dosage: 2 DF, DAILY
     Route: 048
     Dates: start: 20160906, end: 20160907

REACTIONS (4)
  - Product size issue [Unknown]
  - Product difficult to swallow [Unknown]
  - Dysphagia [Unknown]
  - Throat irritation [Unknown]

NARRATIVE: CASE EVENT DATE: 20160906
